FAERS Safety Report 13940948 (Version 1)
Quarter: 2017Q3

REPORT INFORMATION
  Report Type: Spontaneous
  Country: SI (occurrence: SI)
  Receive Date: 20170906
  Receipt Date: 20170906
  Transmission Date: 20171127
  Serious: Yes (Hospitalization, Other)
  Sender: FDA-Public Use
  Company Number: SI-TEVA-801079ACC

PATIENT
  Age: 62 Year
  Sex: Female

DRUGS (6)
  1. SYMBICORT [Concomitant]
     Active Substance: BUDESONIDE\FORMOTEROL FUMARATE DIHYDRATE
     Dosage: 640 MICROGRAM DAILY;
  2. DORMICUM (NITRAZEPAM) [Concomitant]
     Active Substance: NITRAZEPAM
  3. CISPLATIN. [Concomitant]
     Active Substance: CISPLATIN
     Dates: start: 20170801, end: 20170801
  4. GEMCITABINE [Suspect]
     Active Substance: GEMCITABINE\GEMCITABINE HYDROCHLORIDE
     Indication: NON-SMALL CELL LUNG CANCER
     Route: 042
     Dates: start: 20170731, end: 20170808
  5. VENTOLIN [Concomitant]
     Active Substance: ALBUTEROL SULFATE
  6. NEBILET [Concomitant]
     Active Substance: NEBIVOLOL
     Dosage: .5 DOSAGE FORMS DAILY;

REACTIONS (4)
  - Hypertension [Recovered/Resolved]
  - Dyspnoea [Recovered/Resolved]
  - Hyperhidrosis [Recovered/Resolved]
  - Pallor [Recovered/Resolved]

NARRATIVE: CASE EVENT DATE: 20170808
